FAERS Safety Report 10409084 (Version 1)
Quarter: 2014Q3

REPORT INFORMATION
  Report Type: Spontaneous
  Country: US (occurrence: None)
  Receive Date: 20140825
  Receipt Date: 20140825
  Transmission Date: 20150326
  Serious: Yes (Disabling)
  Sender: FDA-Public Use
  Company Number: None

PATIENT
  Age: 51 Year
  Sex: Female
  Weight: 57.15 kg

DRUGS (1)
  1. ADVIL [Suspect]
     Active Substance: IBUPROFEN
     Indication: BACK PAIN
     Dosage: 2 GELS TWICE DAILY TAKEN BY MOUTH
     Route: 048
     Dates: start: 20140818, end: 20140819

REACTIONS (14)
  - Abdominal distension [None]
  - Diarrhoea [None]
  - Vomiting [None]
  - Malaise [None]
  - Hyperhidrosis [None]
  - Headache [None]
  - Abdominal pain [None]
  - Fatigue [None]
  - Asthenia [None]
  - Arthralgia [None]
  - Myalgia [None]
  - Abdominal pain upper [None]
  - Nausea [None]
  - Flatulence [None]

NARRATIVE: CASE EVENT DATE: 20140820
